FAERS Safety Report 11145718 (Version 1)
Quarter: 2015Q2

REPORT INFORMATION
  Report Type: Spontaneous
  Country: US (occurrence: US)
  Receive Date: 20150528
  Receipt Date: 20150528
  Transmission Date: 20150821
  Serious: Yes (Hospitalization)
  Sender: FDA-Public Use
  Company Number: US-B.I. PHARMACEUTICALS,INC./RIDGEFIELD-2015-BI-27346BP

PATIENT
  Age: 70 Year
  Sex: Male

DRUGS (5)
  1. INTERFERON BETA-1A [Concomitant]
     Active Substance: INTERFERON BETA-1A
     Indication: MULTIPLE SCLEROSIS
     Route: 065
  2. FAMPRIDINE [Concomitant]
     Active Substance: DALFAMPRIDINE
     Indication: MULTIPLE SCLEROSIS
     Route: 065
  3. CARVEDILOL. [Concomitant]
     Active Substance: CARVEDILOL
     Indication: ATRIAL FIBRILLATION
     Route: 065
  4. DIMETHYL FUMARATE [Concomitant]
     Active Substance: DIMETHYL FUMARATE
     Indication: DRUG THERAPY
     Route: 065
  5. PRADAXA [Suspect]
     Active Substance: DABIGATRAN ETEXILATE MESYLATE
     Indication: ATRIAL FIBRILLATION
     Route: 065

REACTIONS (13)
  - Rhinorrhoea [Unknown]
  - Diarrhoea [Unknown]
  - Irritability [Unknown]
  - Syncope [Unknown]
  - Head injury [Unknown]
  - Abdominal pain [Unknown]
  - Flushing [Unknown]
  - Abdominal pain upper [Unknown]
  - Fall [Unknown]
  - Off label use [Unknown]
  - Hot flush [Unknown]
  - Abdominal distension [Unknown]
  - Hyperhidrosis [Unknown]

NARRATIVE: CASE EVENT DATE: 20140815
